FAERS Safety Report 7150692-1 (Version None)
Quarter: 2010Q4

REPORT INFORMATION
  Report Type: 
  Country: None (occurrence: None)
  Receive Date: 20101207
  Receipt Date: 20101207
  Transmission Date: 20110411
  Serious: No
  Sender: FDA-Public Use
  Company Number: None

PATIENT
  Age: 69 Year
  Sex: Male
  Weight: 81.6475 kg

DRUGS (2)
  1. SIMVASTATIN [Suspect]
     Indication: BLOOD CHOLESTEROL
     Dosage: 20MG (1/2) 1 PER DAY MOUTH
     Route: 048
     Dates: start: 20100616, end: 20100630
  2. SIMVASTATIN [Suspect]
     Indication: BLOOD CHOLESTEROL
     Dosage: 20MG (1/2) 1 PER DAY MOUTH
     Route: 048
     Dates: start: 20100819, end: 20100902

REACTIONS (2)
  - DIPLOPIA [None]
  - VISION BLURRED [None]
